FAERS Safety Report 19029654 (Version 2)
Quarter: 2021Q1

REPORT INFORMATION
  Report Type: Spontaneous
  Country: US (occurrence: US)
  Receive Date: 20210319
  Receipt Date: 20210324
  Transmission Date: 20210420
  Serious: No
  Sender: FDA-Public Use
  Company Number: US-UNITED THERAPEUTICS-UNT-2021-004516

PATIENT
  Sex: Female
  Weight: 68.03 kg

DRUGS (4)
  1. REMODULIN [Suspect]
     Active Substance: TREPROSTINIL
     Dosage: 0.067 ?G/KG, CONTINUING
     Route: 041
  2. REVATIO [Concomitant]
     Active Substance: SILDENAFIL CITRATE
     Indication: PRODUCT USED FOR UNKNOWN INDICATION
     Dosage: UNK
     Route: 065
  3. REMODULIN [Suspect]
     Active Substance: TREPROSTINIL
     Dosage: 0.063 ?G/KG, CONTINUING
     Route: 041
  4. REMODULIN [Suspect]
     Active Substance: TREPROSTINIL
     Indication: PULMONARY ARTERIAL HYPERTENSION
     Dosage: UNK, CONTINUING
     Route: 041
     Dates: start: 20180803

REACTIONS (19)
  - Headache [Unknown]
  - Pruritus [Unknown]
  - Pain in jaw [Recovering/Resolving]
  - Dyspnoea [Unknown]
  - Catheter site pain [Recovering/Resolving]
  - Chest pain [Recovered/Resolved]
  - Palpitations [Unknown]
  - Dizziness [Unknown]
  - Catheter site related reaction [Recovering/Resolving]
  - Fatigue [Unknown]
  - Nasal congestion [Unknown]
  - Catheter site rash [Recovering/Resolving]
  - Diarrhoea [Recovering/Resolving]
  - Dermatitis contact [Unknown]
  - Catheter site erythema [Recovering/Resolving]
  - Catheter site dryness [Recovering/Resolving]
  - Dyspnoea exertional [Unknown]
  - Flushing [Recovering/Resolving]
  - Catheter site pruritus [Recovering/Resolving]
